FAERS Safety Report 13175821 (Version 1)
Quarter: 2017Q1

REPORT INFORMATION
  Report Type: Spontaneous
  Country: RU (occurrence: RU)
  Receive Date: 20170201
  Receipt Date: 20170201
  Transmission Date: 20170428
  Serious: Yes (Hospitalization)
  Sender: FDA-Public Use
  Company Number: RU-BAYER-2017-016067

PATIENT
  Age: 31 Year
  Sex: Female

DRUGS (1)
  1. CIPROBAY 500 MG [Suspect]
     Active Substance: CIPROFLOXACIN
     Route: 048

REACTIONS (3)
  - Benign ovarian tumour [Recovered/Resolved]
  - Back pain [Unknown]
  - Leukocyturia [Unknown]
